FAERS Safety Report 8905700 (Version 1)
Quarter: 2012Q4

REPORT INFORMATION
  Report Type: 
  Country: IT (occurrence: IT)
  Receive Date: 20121113
  Receipt Date: 20121113
  Transmission Date: 20130627
  Serious: Yes (Life-Threatening, Other)
  Sender: FDA-Public Use
  Company Number: IT-ASTRAZENECA-2012SE85297

PATIENT
  Sex: Female

DRUGS (27)
  1. SEROQUEL [Suspect]
     Indication: SUICIDE ATTEMPT
     Route: 048
  2. SEROQUEL [Suspect]
     Indication: BIPOLAR DISORDER
     Route: 048
  3. SEROQUEL [Suspect]
     Indication: SUICIDE ATTEMPT
     Route: 048
     Dates: start: 20121105, end: 20121105
  4. SEROQUEL [Suspect]
     Indication: BIPOLAR DISORDER
     Route: 048
     Dates: start: 20121105, end: 20121105
  5. MOMENT [Suspect]
     Indication: SUICIDE ATTEMPT
     Route: 048
     Dates: start: 20121105, end: 20121105
  6. TACHIPIRINA [Suspect]
     Indication: SUICIDE ATTEMPT
     Route: 048
     Dates: start: 20121105, end: 20121105
  7. VENLAFAXINE [Suspect]
     Indication: SUICIDE ATTEMPT
     Route: 048
  8. VENLAFAXINE [Suspect]
     Indication: BIPOLAR DISORDER
     Route: 048
  9. VENLAFAXINE [Suspect]
     Indication: SUICIDE ATTEMPT
     Route: 048
     Dates: start: 20121105, end: 20121105
  10. VENLAFAXINE [Suspect]
     Indication: BIPOLAR DISORDER
     Route: 048
     Dates: start: 20121105, end: 20121105
  11. ZERINOL [Suspect]
     Indication: SUICIDE ATTEMPT
     Dosage: 300 MG + 2 MG, 6 DF ONCE
     Route: 048
     Dates: start: 20121105, end: 20121105
  12. EN [Suspect]
     Indication: SUICIDE ATTEMPT
     Route: 048
  13. EN [Suspect]
     Indication: BIPOLAR DISORDER
     Route: 048
  14. EN [Suspect]
     Indication: SUICIDE ATTEMPT
     Dosage: 1MG/ML,1 BOTTLE ONCE
     Route: 048
     Dates: start: 20121105, end: 20121105
  15. EN [Suspect]
     Indication: BIPOLAR DISORDER
     Dosage: 1MG/ML,1 BOTTLE ONCE
     Route: 048
     Dates: start: 20121105, end: 20121105
  16. EN [Suspect]
     Indication: SUICIDE ATTEMPT
     Route: 048
     Dates: start: 20121105, end: 20121105
  17. EN [Suspect]
     Indication: BIPOLAR DISORDER
     Route: 048
     Dates: start: 20121105, end: 20121105
  18. DEXIBUPROFEN [Suspect]
     Indication: SUICIDE ATTEMPT
     Route: 048
     Dates: start: 20121105, end: 20121105
  19. FLUOXETINE [Suspect]
     Indication: SUICIDE ATTEMPT
     Route: 048
  20. FLUOXETINE [Suspect]
     Indication: BIPOLAR DISORDER
     Route: 048
  21. FLUOXETINE [Suspect]
     Indication: SUICIDE ATTEMPT
     Route: 048
     Dates: start: 20121105, end: 20121105
  22. FLUOXETINE [Suspect]
     Indication: BIPOLAR DISORDER
     Route: 048
     Dates: start: 20121105, end: 20121105
  23. LORNOXICAM [Suspect]
     Indication: SUICIDE ATTEMPT
     Route: 048
     Dates: start: 20121105, end: 20121105
  24. DEPAKIN [Suspect]
     Indication: SUICIDE ATTEMPT
     Route: 048
  25. DEPAKIN [Suspect]
     Indication: BIPOLAR DISORDER
     Route: 048
  26. DEPAKIN [Suspect]
     Indication: SUICIDE ATTEMPT
     Route: 048
     Dates: start: 20121105, end: 20121105
  27. DEPAKIN [Suspect]
     Indication: BIPOLAR DISORDER
     Route: 048
     Dates: start: 20121105, end: 20121105

REACTIONS (7)
  - Suicide attempt [Recovering/Resolving]
  - Long QT syndrome [Recovering/Resolving]
  - Respiratory failure [Recovering/Resolving]
  - Sopor [Recovering/Resolving]
  - Drug abuse [Unknown]
  - Hypotension [Recovering/Resolving]
  - Tachycardia [Recovering/Resolving]
